FAERS Safety Report 5981554-0 (Version None)
Quarter: 2008Q4

REPORT INFORMATION
  Report Type: 
  Country: None (occurrence: None)
  Receive Date: 20081202
  Receipt Date: 20081121
  Transmission Date: 20090506
  Serious: Yes (Hospitalization)
  Sender: FDA-Public Use
  Company Number: SPV1-2008-02590

PATIENT
  Age: 47 Year
  Sex: Male

DRUGS (1)
  1. FOSRENOL [Suspect]
     Dosage: ORAL, 1500 MG, 3X/DAY: TID WITH MEALS, ORAL
     Route: 048

REACTIONS (1)
  - OSTEOMYELITIS [None]
